FAERS Safety Report 9535920 (Version 1)
Quarter: 2013Q3

REPORT INFORMATION
  Report Type: Report from Study
  Country: JP (occurrence: JP)
  Receive Date: 20130919
  Receipt Date: 20130919
  Transmission Date: 20140515
  Serious: Yes (Other)
  Sender: FDA-Public Use
  Company Number: JP-ROCHE-1276572

PATIENT
  Sex: 0

DRUGS (6)
  1. TRASTUZUMAB [Suspect]
     Indication: HER-2 POSITIVE BREAST CANCER
     Dosage: LOADING DOSE
     Route: 042
  2. TRASTUZUMAB [Suspect]
     Dosage: ON DAY 1 OF EVERY WEEK FOR 12 CYCLE
     Route: 042
  3. TRASTUZUMAB [Suspect]
     Dosage: 4 MG/KG AS A LOADING DOSE FOLLOWED BY 2 MG/KG EVERY WEEK FOR 40 CYCLE OR 8 MG/KG AS A LOADING DOSE F
     Route: 042
  4. EPIRUBICIN [Suspect]
     Indication: HER-2 POSITIVE BREAST CANCER
     Dosage: ON DAY 1 EVERY 3 WEEKS FOR 4 CYCLE
     Route: 042
  5. CYCLOPHOSPHAMIDE [Suspect]
     Indication: HER-2 POSITIVE BREAST CANCER
     Dosage: ON DAY 1 OF EVERY 3 WEEKS FOR 4 CYCLE
     Route: 042
  6. DOCETAXEL [Suspect]
     Indication: HER-2 POSITIVE BREAST CANCER
     Dosage: ON DAY 1 EVERY WEEK FOR 4 CYCLES
     Route: 042

REACTIONS (13)
  - Neutropenia [Unknown]
  - Leukopenia [Unknown]
  - Infusion related reaction [Unknown]
  - Exfoliative rash [Unknown]
  - Palmar-plantar erythrodysaesthesia syndrome [Unknown]
  - Decreased appetite [Unknown]
  - Dysgeusia [Unknown]
  - Aspartate aminotransferase increased [Unknown]
  - Alanine aminotransferase increased [Unknown]
  - Dizziness [Unknown]
  - Peripheral sensory neuropathy [Unknown]
  - Arthralgia [Unknown]
  - Myalgia [Unknown]
